FAERS Safety Report 5584310-0 (Version None)
Quarter: 2008Q1

REPORT INFORMATION
  Report Type: 
  Country: None (occurrence: None)
  Receive Date: 20080108
  Receipt Date: 20080102
  Transmission Date: 20080703
  Serious: Yes (Hospitalization, Other)
  Sender: FDA-Public Use
  Company Number: US-ELI_LILLY_AND_COMPANY-US200710007213

PATIENT
  Age: 53 Year
  Sex: Female
  Weight: 65.306 kg

DRUGS (7)
  1. EVISTA [Suspect]
     Indication: OSTEOPOROSIS
     Dosage: 60 MG, UNK
     Route: 048
     Dates: start: 20050808, end: 20050901
  2. SYNTHROID [Concomitant]
     Dosage: 1 MG, UNK
  3. ASPIRIN [Concomitant]
     Dosage: 81 MG, DAILY (1/D)
  4. HYDROCHLOROTHIAZIDE [Concomitant]
     Dosage: 12.5 MG, DAILY (1/D)
  5. ACCUPRIL [Concomitant]
     Dosage: 40 MG, DAILY (1/D)
  6. FISH OIL [Concomitant]
     Dosage: 2 UNK, DAILY (1/D)
  7. CITRACAL [Concomitant]
     Dosage: 630 MG, 2/D

REACTIONS (1)
  - TRANSIENT ISCHAEMIC ATTACK [None]
